FAERS Safety Report 15958883 (Version 1)
Quarter: 2019Q1

REPORT INFORMATION
  Report Type: Spontaneous
  Country: GR (occurrence: GR)
  Receive Date: 20190213
  Receipt Date: 20190213
  Transmission Date: 20190417
  Serious: Yes (Hospitalization)
  Sender: FDA-Public Use
  Company Number: GR-CONCORDIA PHARMACEUTICALS INC.-GSH201902-000250

PATIENT
  Age: 42 Year
  Sex: Male

DRUGS (2)
  1. PLAQUENIL [Suspect]
     Active Substance: HYDROXYCHLOROQUINE SULFATE
     Indication: PRODUCT USED FOR UNKNOWN INDICATION
     Route: 048
  2. ADALAT [Concomitant]
     Active Substance: NIFEDIPINE

REACTIONS (4)
  - Pupils unequal [Unknown]
  - Raynaud^s phenomenon [Unknown]
  - Hypoaesthesia [Unknown]
  - Muscular weakness [Unknown]
